FAERS Safety Report 13078975 (Version 2)
Quarter: 2017Q3

REPORT INFORMATION
  Report Type: Report from Study
  Country: CA (occurrence: CA)
  Receive Date: 20170102
  Receipt Date: 20170913
  Transmission Date: 20171127
  Serious: Yes (Other)
  Sender: FDA-Public Use
  Company Number: PHHY2012CA061334

PATIENT
  Age: 59 Year
  Sex: Female

DRUGS (4)
  1. SANDOSTATIN LAR DEPOT [Suspect]
     Active Substance: OCTREOTIDE ACETATE
     Indication: ACROMEGALY
     Dosage: 20 MG, QMO(EVERY 4 WEEKS)
     Route: 030
     Dates: start: 20120704
  2. SANDOSTATIN [Suspect]
     Active Substance: OCTREOTIDE ACETATE
     Indication: ACROMEGALY
     Dosage: 50 UG, ONCE/SINGLE (TEST DOSE)
     Route: 030
     Dates: start: 20120618, end: 20120618
  3. SANDOSTATIN LAR DEPOT [Suspect]
     Active Substance: OCTREOTIDE ACETATE
     Dosage: 30 MG, QMO (EVERY 4 WEEKS)
     Route: 030
     Dates: start: 20130913
  4. SYNTHROID [Concomitant]
     Active Substance: LEVOTHYROXINE SODIUM
     Indication: PRODUCT USED FOR UNKNOWN INDICATION
     Dosage: 0.05 MG
     Route: 065
     Dates: start: 20140613

REACTIONS (28)
  - Pain [Recovering/Resolving]
  - Ligament sprain [Unknown]
  - Thyroid disorder [Unknown]
  - Eye irritation [Unknown]
  - Arthralgia [Unknown]
  - Bone pain [Not Recovered/Not Resolved]
  - Eye pain [Unknown]
  - Product quality issue [Unknown]
  - Blood pressure systolic increased [Not Recovered/Not Resolved]
  - Lacrimation increased [Not Recovered/Not Resolved]
  - Weight decreased [Unknown]
  - Diarrhoea [Unknown]
  - Headache [Unknown]
  - Needle issue [Unknown]
  - Back pain [Unknown]
  - Weight increased [Unknown]
  - Paraesthesia [Unknown]
  - Fatigue [Not Recovered/Not Resolved]
  - Abdominal distension [Recovered/Resolved]
  - Dizziness [Unknown]
  - Oesophageal spasm [Recovered/Resolved]
  - Muscle spasms [Unknown]
  - Neuralgia [Not Recovered/Not Resolved]
  - Osteoarthritis [Unknown]
  - Pain in extremity [Unknown]
  - Pyrexia [Unknown]
  - Vomiting [Unknown]
  - Nausea [Not Recovered/Not Resolved]

NARRATIVE: CASE EVENT DATE: 20120809
